FAERS Safety Report 5477567-8 (Version None)
Quarter: 2007Q3

REPORT INFORMATION
  Report Type: 
  Country: None (occurrence: None)
  Receive Date: 20070925
  Receipt Date: 20070710
  Transmission Date: 20080115
  Serious: No
  Sender: FDA-Public Use
  Company Number: 2007US001623

PATIENT
  Age: 83 Year
  Sex: Female

DRUGS (5)
  1. VESICARE [Suspect]
     Indication: CYSTITIS INTERSTITIAL
     Dosage: 10 MG, ORAL
     Route: 048
     Dates: start: 20060701
  2. IRON (IRON) [Concomitant]
  3. SIMVASTATIN [Concomitant]
  4. VITAMINS [Concomitant]
  5. ASPIRIN [Concomitant]

REACTIONS (3)
  - CONSTIPATION [None]
  - DRUG INEFFECTIVE FOR UNAPPROVED INDICATION [None]
  - DRY MOUTH [None]
